FAERS Safety Report 6006744-2 (Version None)
Quarter: 2008Q4

REPORT INFORMATION
  Report Type: 
  Country: None (occurrence: None)
  Receive Date: 20081217
  Receipt Date: 20081205
  Transmission Date: 20090506
  Serious: Yes (Other)
  Sender: FDA-Public Use
  Company Number: FR-JNJFOC-20081101012

PATIENT
  Age: 36 Year
  Sex: Male
  Weight: 83 kg

DRUGS (4)
  1. REMICADE [Suspect]
     Dosage: INFUSION 2-5 ON UNSPECIFIED DATES
     Route: 042
  2. REMICADE [Suspect]
     Indication: BEHCET'S SYNDROME
     Route: 042
  3. REMICADE [Suspect]
     Indication: UVEITIS
     Dosage: 6 INFUSIONS
     Route: 042
  4. COLCHIMAX [Concomitant]
     Indication: BEHCET'S SYNDROME
     Route: 048

REACTIONS (3)
  - HYPERSENSITIVITY [None]
  - INFUSION RELATED REACTION [None]
  - SERUM SICKNESS [None]
